FAERS Safety Report 20061500 (Version 2)
Quarter: 2021Q4

REPORT INFORMATION
  Report Type: Spontaneous
  Country: CA (occurrence: CA)
  Receive Date: 20211112
  Receipt Date: 20211218
  Transmission Date: 20220303
  Serious: Yes (Other)
  Sender: FDA-Public Use
  Company Number: CA-NOVARTISPH-NVSC2021CA255647

PATIENT
  Age: 69 Year
  Sex: Female

DRUGS (1)
  1. MAXIDEX [Suspect]
     Active Substance: DEXAMETHASONE
     Indication: Eye inflammation
     Dosage: UNK
     Route: 065

REACTIONS (3)
  - Eye injury [Unknown]
  - Product package associated injury [Unknown]
  - Product packaging issue [Unknown]
